FAERS Safety Report 8960341 (Version 1)
Quarter: 2012Q4

REPORT INFORMATION
  Report Type: 
  Country: GB (occurrence: GB)
  Receive Date: 20121211
  Receipt Date: 20121211
  Transmission Date: 20130627
  Serious: Yes (Hospitalization, Other)
  Sender: FDA-Public Use
  Company Number: GB-PFIZER INC-2006099265

PATIENT
  Age: 83 Year
  Sex: Male

DRUGS (3)
  1. IBUPROFEN [Suspect]
     Indication: PAIN
     Dosage: 400 mg, as necessary
     Route: 048
     Dates: start: 19960101, end: 20060628
  2. BENDROFLUAZIDE [Concomitant]
     Indication: BLOOD PRESSURE HIGH
     Dosage: 2.5 mg, 1x/day
     Route: 048
     Dates: start: 19960101
  3. SENNA [Concomitant]
     Indication: CONSTIPATION
     Dosage: 2 AS NECESSARY
     Route: 048

REACTIONS (5)
  - Anaemia [Recovering/Resolving]
  - Duodenitis [Recovering/Resolving]
  - Fatigue [Recovering/Resolving]
  - Duodenal ulcer [Recovering/Resolving]
  - Duodenal ulcer haemorrhage [Recovering/Resolving]
